FAERS Safety Report 5642517-8 (Version None)
Quarter: 2008Q1

REPORT INFORMATION
  Report Type: 
  Country: None (occurrence: None)
  Receive Date: 20080227
  Receipt Date: 20080227
  Transmission Date: 20080703
  Serious: Yes (Hospitalization, Other)
  Sender: FDA-Public Use
  Company Number: None

PATIENT
  Age: 51 Year
  Sex: Female

DRUGS (3)
  1. FOSAMAX [Suspect]
     Indication: HYSTERECTOMY
     Dosage: 70 MG/WEEK
     Dates: start: 19960601, end: 20070701
  2. FOSAMAX [Suspect]
     Indication: OSTEOPOROSIS PROPHYLAXIS
     Dosage: 70 MG/WEEK
     Dates: start: 19960601, end: 20070701
  3. PREMARIN [Concomitant]

REACTIONS (4)
  - OSTEOMYELITIS [None]
  - OSTEONECROSIS [None]
  - SOFT TISSUE DISORDER [None]
  - WOUND SECRETION [None]
